FAERS Safety Report 6119517-7 (Version None)
Quarter: 2009Q1

REPORT INFORMATION
  Report Type: 
  Country: None (occurrence: None)
  Receive Date: 20090316
  Receipt Date: 20090306
  Transmission Date: 20090719
  Serious: Yes (Hospitalization)
  Sender: FDA-Public Use
  Company Number: A0773217A

PATIENT
  Age: 42 Year
  Sex: Male

DRUGS (6)
  1. AVANDIA [Suspect]
     Indication: DIABETES MELLITUS
     Dosage: 8MG PER DAY
     Route: 048
     Dates: start: 19991201
  2. ACTOS [Concomitant]
  3. AMARYL [Concomitant]
  4. CELEBREX [Concomitant]
  5. AMITRIPTYLINE HCL [Concomitant]
  6. RELAFEN [Concomitant]

REACTIONS (10)
  - CARDIAC FAILURE CONGESTIVE [None]
  - CARDIAC VALVE DISEASE [None]
  - CEREBROVASCULAR ACCIDENT [None]
  - CORONARY ARTERY DISEASE [None]
  - HEADACHE [None]
  - HYPERTENSION [None]
  - MYALGIA [None]
  - MYOCARDIAL INFARCTION [None]
  - NEURALGIA [None]
  - TRANSIENT ISCHAEMIC ATTACK [None]
